FAERS Safety Report 13699281 (Version 5)
Quarter: 2018Q4

REPORT INFORMATION
  Report Type: Report from Study
  Country: IT (occurrence: IT)
  Receive Date: 20170628
  Receipt Date: 20181219
  Transmission Date: 20190204
  Serious: Yes (Hospitalization)
  Sender: FDA-Public Use
  Company Number: IT-GILEAD-2017-0279728

PATIENT
  Age: 80 Year
  Sex: Male
  Weight: 60 kg

DRUGS (7)
  1. CARDIOASPIRIN [Concomitant]
     Active Substance: ASPIRIN
     Indication: THROMBOSIS PROPHYLAXIS
     Route: 048
     Dates: start: 2010
  2. BACTRIM [Concomitant]
     Active Substance: SULFAMETHOXAZOLE\TRIMETHOPRIM
     Indication: ANTIFUNGAL PROPHYLAXIS
     Route: 048
     Dates: start: 20160325
  3. LAMIVUDINE. [Concomitant]
     Active Substance: LAMIVUDINE
     Indication: ANTIVIRAL PROPHYLAXIS
     Route: 048
     Dates: start: 20160325
  4. IDELALISIB [Suspect]
     Active Substance: IDELALISIB
     Indication: B-CELL LYMPHOMA
     Dosage: 100 MG, BID
     Route: 048
     Dates: start: 20160226, end: 20161202
  5. LANSOPRAZOLE. [Concomitant]
     Active Substance: LANSOPRAZOLE
     Indication: PROPHYLAXIS AGAINST GASTROINTESTINAL ULCER
     Route: 048
     Dates: start: 20160226
  6. FINASTERIDE. [Concomitant]
     Active Substance: FINASTERIDE
     Indication: BENIGN PROSTATIC HYPERPLASIA
     Route: 048
     Dates: start: 2010
  7. ACICLOVIR [Concomitant]
     Active Substance: ACYCLOVIR
     Indication: ANTIVIRAL PROPHYLAXIS
     Route: 048
     Dates: start: 20160325

REACTIONS (1)
  - Oesophageal candidiasis [Recovered/Resolved]

NARRATIVE: CASE EVENT DATE: 20170621
